FAERS Safety Report 5718096-3 (Version None)
Quarter: 2008Q2

REPORT INFORMATION
  Report Type: 
  Country: None (occurrence: None)
  Receive Date: 20080425
  Receipt Date: 20080416
  Transmission Date: 20081010
  Serious: Yes (Hospitalization, Other)
  Sender: FDA-Public Use
  Company Number: US-MERCK-0608USA04371

PATIENT
  Age: 86 Year
  Sex: Female

DRUGS (4)
  1. FOSAMAX [Suspect]
     Indication: BONE DISORDER
     Route: 048
     Dates: start: 19990101, end: 20060803
  2. FOSAMAX [Suspect]
     Indication: OSTEOPOROSIS PROPHYLAXIS
     Route: 048
     Dates: start: 19990101, end: 20060803
  3. IBUPROFEN [Concomitant]
     Route: 065
  4. LASIX [Concomitant]
     Indication: POLYURIA
     Route: 065
     Dates: start: 20000101

REACTIONS (27)
  - ANXIETY [None]
  - BLINDNESS UNILATERAL [None]
  - BREAST DISORDER [None]
  - CATARACT [None]
  - CELLULITIS [None]
  - EDENTULOUS [None]
  - EXOSTOSIS [None]
  - FALL [None]
  - FISTULA [None]
  - GINGIVAL BLEEDING [None]
  - GINGIVAL DISORDER [None]
  - HYPERSENSITIVITY [None]
  - HYPOAESTHESIA [None]
  - IMPAIRED HEALING [None]
  - INFECTION [None]
  - JAW DISORDER [None]
  - ORAL TORUS [None]
  - OSTEOARTHRITIS [None]
  - OSTEOMYELITIS [None]
  - OSTEONECROSIS [None]
  - PARAESTHESIA [None]
  - PATELLA FRACTURE [None]
  - RESORPTION BONE INCREASED [None]
  - SKIN LACERATION [None]
  - STRESS [None]
  - TOOTHACHE [None]
  - VENOUS STASIS [None]
